FAERS Safety Report 10727745 (Version 2)
Quarter: 2015Q1

REPORT INFORMATION
  Report Type: Report from Study
  Country: TW (occurrence: TW)
  Receive Date: 20150121
  Receipt Date: 20150302
  Transmission Date: 20150721
  Serious: Yes (Hospitalization)
  Sender: FDA-Public Use
  Company Number: TW-ABBVIE-15K-153-1334714-00

PATIENT
  Age: 75 Year
  Sex: Female
  Weight: 45 kg

DRUGS (1)
  1. HUMIRA [Suspect]
     Active Substance: ADALIMUMAB
     Indication: RHEUMATOID ARTHRITIS
     Route: 058
     Dates: end: 20141128

REACTIONS (6)
  - Arthritis bacterial [Recovered/Resolved]
  - Pulmonary mycosis [Recovering/Resolving]
  - Nausea [Unknown]
  - Vomiting [Unknown]
  - Cough [Unknown]
  - Liver disorder [Unknown]

NARRATIVE: CASE EVENT DATE: 20141229
